FAERS Safety Report 5390047-3 (Version None)
Quarter: 2007Q3

REPORT INFORMATION
  Report Type: 
  Country: None (occurrence: None)
  Receive Date: 20070718
  Receipt Date: 20070717
  Transmission Date: 20080115
  Serious: Yes (Death, Hospitalization)
  Sender: FDA-Public Use
  Company Number: GB-BRISTOL-MYERS SQUIBB COMPANY-13848148

PATIENT
  Age: 67 Year
  Sex: Female

DRUGS (11)
  1. CISPLATIN [Suspect]
     Indication: HODGKIN'S DISEASE
  2. BLEOMYCIN [Suspect]
     Indication: HODGKIN'S DISEASE
  3. CYCLOPHOSPHAMIDE [Suspect]
     Indication: HODGKIN'S DISEASE
  4. ETOPOSIDE [Suspect]
     Indication: HODGKIN'S DISEASE
  5. METHOTREXATE [Suspect]
     Indication: HODGKIN'S DISEASE
  6. VINCRISTINE SULFATE [Suspect]
     Indication: HODGKIN'S DISEASE
  7. ADRIAMYCIN PFS [Suspect]
     Indication: HODGKIN'S DISEASE
  8. CYTARABINE [Suspect]
     Indication: HODGKIN'S DISEASE
  9. DEXAMETHASONE 0.5MG TAB [Suspect]
     Indication: HODGKIN'S DISEASE
  10. PREDNISONE [Suspect]
     Indication: HODGKIN'S DISEASE
  11. PROCARBAZINE HCL [Suspect]
     Indication: HODGKIN'S DISEASE

REACTIONS (2)
  - FEBRILE NEUTROPENIA [None]
  - MALIGNANT NEOPLASM PROGRESSION [None]
